FAERS Safety Report 20920495 (Version 1)
Quarter: 2022Q2

REPORT INFORMATION
  Report Type: Spontaneous
  Country: US (occurrence: None)
  Receive Date: 20220606
  Receipt Date: 20220606
  Transmission Date: 20220721
  Serious: Yes (Life-Threatening)
  Sender: FDA-Public Use
  Company Number: None

PATIENT
  Age: 71 Year
  Sex: Male
  Weight: 76 kg

DRUGS (1)
  1. QUETIAPINE [Suspect]
     Active Substance: QUETIAPINE
     Indication: Depression
     Dosage: OTHER FREQUENCY : AM;?
     Route: 048
     Dates: start: 20220302, end: 20220327

REACTIONS (1)
  - Hypothermia [None]

NARRATIVE: CASE EVENT DATE: 20220327
